FAERS Safety Report 9333191 (Version 1)
Quarter: 2013Q2

REPORT INFORMATION
  Report Type: Spontaneous
  Country: US (occurrence: None)
  Receive Date: 20130604
  Receipt Date: 20130604
  Transmission Date: 20140414
  Serious: Yes (Other)
  Sender: FDA-Public Use
  Company Number: ONY-2013-008

PATIENT
  Sex: 0

DRUGS (1)
  1. INFASURF [Suspect]
     Route: 039

REACTIONS (4)
  - Bradycardia neonatal [None]
  - Oxygen saturation decreased [None]
  - Hypoventilation [None]
  - Endotracheal intubation complication [None]
